FAERS Safety Report 14776739 (Version 2)
Quarter: 2018Q2

REPORT INFORMATION
  Report Type: Report from Study
  Country: US (occurrence: US)
  Receive Date: 20180419
  Receipt Date: 20180522
  Transmission Date: 20180711
  Serious: Yes (Hospitalization)
  Sender: FDA-Public Use
  Company Number: US-ASTRAZENECA-2018SE32281

PATIENT
  Age: 29141 Day
  Sex: Male
  Weight: 81.6 kg

DRUGS (8)
  1. ATORVASTATIN [Concomitant]
     Active Substance: ATORVASTATIN
     Indication: BLOOD CHOLESTEROL DECREASED
     Route: 048
     Dates: start: 20180309
  2. ASPIRIN. [Concomitant]
     Active Substance: ASPIRIN
     Indication: SUPPLEMENTATION THERAPY
     Route: 048
     Dates: start: 20180307
  3. METOPROLOL TARTRATE. [Suspect]
     Active Substance: METOPROLOL TARTRATE
     Indication: BLOOD PRESSURE ABNORMAL
     Route: 065
     Dates: start: 20180308
  4. RANEXA [Concomitant]
     Active Substance: RANOLAZINE
     Indication: ARTERECTOMY
     Route: 048
     Dates: start: 20180410
  5. AMLODIPINE BENZAPRIL [Concomitant]
     Active Substance: AMLODIPINE BESYLATE\BENAZEPRIL HYDROCHLORIDE
     Indication: BLOOD PRESSURE ABNORMAL
     Route: 048
  6. ISOSORBIDE MN ER [Concomitant]
     Active Substance: ISOSORBIDE
     Indication: ARTERECTOMY
     Route: 048
  7. ISOSORBIDE MN ER [Concomitant]
     Active Substance: ISOSORBIDE
     Indication: ARTERECTOMY
     Route: 048
     Dates: start: 20180205, end: 20180307
  8. BRILINTA [Suspect]
     Active Substance: TICAGRELOR
     Indication: STENT PLACEMENT
     Route: 048
     Dates: start: 20180307, end: 20180403

REACTIONS (6)
  - Microvascular coronary artery disease [Unknown]
  - Chest pain [Unknown]
  - Body height decreased [Unknown]
  - Dyspnoea [Not Recovered/Not Resolved]
  - Diarrhoea [Unknown]
  - Angina pectoris [Recovering/Resolving]

NARRATIVE: CASE EVENT DATE: 20180410
